FAERS Safety Report 8389169-4 (Version None)
Quarter: 2012Q2

REPORT INFORMATION
  Report Type: 
  Country: None (occurrence: None)
  Receive Date: 20120528
  Receipt Date: 20120524
  Transmission Date: 20120825
  Serious: Yes (Death, Hospitalization, Other)
  Sender: FDA-Public Use
  Company Number: PHHY2010CA35367

PATIENT
  Sex: Male

DRUGS (4)
  1. AFINITOR [Suspect]
     Indication: THYMIC CANCER METASTATIC
     Dosage: 10 MG,
     Route: 048
     Dates: start: 20101206
  2. ZOMETA [Suspect]
     Indication: THYMIC CANCER METASTATIC
     Dosage: 4 MG EVERY 3 WEEKS
     Dates: start: 20100526, end: 20120427
  3. AREDIA [Suspect]
     Indication: THYMIC CANCER METASTATIC
  4. SANDOSTATIN [Suspect]
     Indication: THYMIC CANCER METASTATIC
     Dosage: 30 MG, ONCE IN 4 WEEKS
     Route: 030
     Dates: start: 20081227

REACTIONS (12)
  - PNEUMONIA [None]
  - NEOPLASM MALIGNANT [None]
  - HEART RATE INCREASED [None]
  - DEHYDRATION [None]
  - NEOPLASM PROGRESSION [None]
  - NASOPHARYNGITIS [None]
  - BLOOD CALCIUM INCREASED [None]
  - BLOOD PHOSPHORUS DECREASED [None]
  - CARBON DIOXIDE INCREASED [None]
  - ANION GAP DECREASED [None]
  - MALAISE [None]
  - PULMONARY EMBOLISM [None]
